FAERS Safety Report 17390710 (Version 4)
Quarter: 2020Q4

REPORT INFORMATION
  Report Type: Report from Study
  Country: DK (occurrence: DK)
  Receive Date: 20200207
  Receipt Date: 20201029
  Transmission Date: 20210113
  Serious: Yes (Hospitalization)
  Sender: FDA-Public Use
  Company Number: DK-ROCHE-2541973

PATIENT
  Age: 84 Year
  Sex: Male

DRUGS (26)
  1. VENETOCLAX. [Suspect]
     Active Substance: VENETOCLAX
     Indication: CHRONIC LYMPHOCYTIC LEUKAEMIA
     Dosage: DATE OF MOST RECENT DOSE (400 MG) OF VENETOCLAX PRIOR TO AE ONSET: 29/JAN/2020.
     Route: 048
     Dates: start: 20190808, end: 20190904
  2. VENETOCLAX. [Suspect]
     Active Substance: VENETOCLAX
     Route: 048
     Dates: start: 20190905, end: 20191002
  3. FINASTERID [Concomitant]
     Active Substance: FINASTERIDE
     Indication: BENIGN PROSTATIC HYPERPLASIA
     Dates: start: 20111221
  4. MAGNESIA [Concomitant]
     Active Substance: MAGNESIUM HYDROXIDE
     Indication: CONSTIPATION
     Dates: start: 20150916
  5. NEPAFENAC [Concomitant]
     Active Substance: NEPAFENAC
     Dates: start: 20161208
  6. TOILAX [Concomitant]
     Active Substance: BISACODYL
     Indication: CONSTIPATION
     Dates: start: 20191031
  7. SIMVASTATIN. [Concomitant]
     Active Substance: SIMVASTATIN
     Indication: HYPERCHOLESTEROLAEMIA
     Dates: start: 20111221
  8. VENETOCLAX. [Suspect]
     Active Substance: VENETOCLAX
     Route: 048
     Dates: start: 20191128, end: 20191226
  9. RITUXIMAB. [Suspect]
     Active Substance: RITUXIMAB
     Dosage: CYCLE 5 DAY 1
     Route: 042
     Dates: start: 20191128
  10. ACETYLSALICYLIC ACID [Concomitant]
     Active Substance: ASPIRIN
     Indication: THROMBOSIS PROPHYLAXIS
     Dates: start: 20111221
  11. DEXAMETHASONE;TOBRAMYCIN [Concomitant]
     Active Substance: DEXAMETHASONE\TOBRAMYCIN
     Dates: start: 20161208
  12. FLUCONAZOL [Concomitant]
     Active Substance: FLUCONAZOLE
     Indication: FUNGAL INFECTION
     Route: 048
     Dates: start: 20200118
  13. VENETOCLAX. [Suspect]
     Active Substance: VENETOCLAX
     Route: 048
     Dates: start: 20191003, end: 20191030
  14. RITUXIMAB. [Suspect]
     Active Substance: RITUXIMAB
     Indication: CHRONIC LYMPHOCYTIC LEUKAEMIA
     Dosage: CYCLE1 DAY1?DATE OF MOST RECENT DOSE (930 UNIT) OF RITUXIMAB PRIOR TO AE ONSET: 07/JAN/2020.
     Route: 042
     Dates: start: 20190808
  15. RITUXIMAB. [Suspect]
     Active Substance: RITUXIMAB
     Dosage: CYCLE 2 DAY 1
     Route: 042
     Dates: start: 20190905
  16. RITUXIMAB. [Suspect]
     Active Substance: RITUXIMAB
     Route: 042
     Dates: start: 20150810, end: 20151130
  17. RITUXIMAB. [Suspect]
     Active Substance: RITUXIMAB
     Dosage: CYCLE 6 DAY 1
     Route: 042
     Dates: start: 20200107
  18. GLYCERYLNITRAT [Concomitant]
     Indication: AORTIC ARTERIOSCLEROSIS
     Dates: start: 20141104
  19. VENETOCLAX. [Suspect]
     Active Substance: VENETOCLAX
     Route: 048
     Dates: start: 20191031, end: 20191127
  20. RITUXIMAB. [Suspect]
     Active Substance: RITUXIMAB
     Dosage: CYCLE 3 DAY 1
     Route: 042
     Dates: start: 20191003
  21. RITUXIMAB. [Suspect]
     Active Substance: RITUXIMAB
     Dosage: CYCLE 4 DAY 1
     Route: 042
     Dates: start: 20191031
  22. RITUXIMAB. [Suspect]
     Active Substance: RITUXIMAB
     Route: 042
     Dates: start: 20150713, end: 20150713
  23. TICAGRELOR. [Concomitant]
     Active Substance: TICAGRELOR
     Indication: THROMBOSIS PROPHYLAXIS
     Dates: start: 20161230
  24. ELIQUIS [Concomitant]
     Active Substance: APIXABAN
     Dates: start: 20200102
  25. MABLET [Concomitant]
     Dates: start: 20200117
  26. AFEBRIL [Concomitant]
     Indication: VOMITING
     Dates: start: 20200131

REACTIONS (1)
  - Gastroenteritis [Recovered/Resolved]

NARRATIVE: CASE EVENT DATE: 20200130
